FAERS Safety Report 7003663-X (Version None)
Quarter: 2010Q3

REPORT INFORMATION
  Report Type: 
  Country: None (occurrence: None)
  Receive Date: 20100920
  Receipt Date: 20090428
  Transmission Date: 20110219
  Serious: No
  Sender: FDA-Public Use
  Company Number: US-WYE-H09146609

PATIENT
  Age: 58 Year
  Sex: Female
  Weight: 74 kg

DRUGS (6)
  1. PROTONIX [Suspect]
     Indication: GASTROOESOPHAGEAL REFLUX DISEASE
     Route: 048
     Dates: start: 20080101
  2. CHANTIX [Concomitant]
  3. PLAQUENIL [Concomitant]
  4. PROMETHAZINE [Concomitant]
  5. OXYCONTIN [Concomitant]
  6. ULTRAM [Concomitant]

REACTIONS (1)
  - DRUG SCREEN POSITIVE [None]
